FAERS Safety Report 15212991 (Version 1)
Quarter: 2018Q3

REPORT INFORMATION
  Report Type: Spontaneous
  Country: JP (occurrence: JP)
  Receive Date: 20180730
  Receipt Date: 20180730
  Transmission Date: 20181010
  Serious: Yes (Other)
  Sender: FDA-Public Use
  Company Number: JP-ORION CORPORATION ORION PHARMA-ENTC2018-0224

PATIENT
  Age: 56 Year
  Sex: Male

DRUGS (12)
  1. COMTAN [Suspect]
     Active Substance: ENTACAPONE
     Route: 065
  2. PRAMIPEXOLE. [Concomitant]
     Active Substance: PRAMIPEXOLE
     Dosage: AS NEEDED
     Route: 065
     Dates: start: 2006
  3. ZONISAMIDE. [Concomitant]
     Active Substance: ZONISAMIDE
     Route: 065
  4. LEVODOPA BENSERAZIDE [Concomitant]
     Active Substance: BENSERAZIDE\LEVODOPA
     Dosage: AFTER EACH MEAL
     Route: 065
  5. COMTAN [Suspect]
     Active Substance: ENTACAPONE
     Indication: PARKINSON^S DISEASE
     Dosage: AS NEEDED
     Route: 065
  6. LEVODOPA BENSERAZIDE [Concomitant]
     Active Substance: BENSERAZIDE\LEVODOPA
     Dosage: DOSE INCREASED
     Route: 065
     Dates: start: 2005
  7. AMANTADINE. [Concomitant]
     Active Substance: AMANTADINE HYDROCHLORIDE
     Route: 065
  8. STALEVO [Suspect]
     Active Substance: CARBIDOPA\ENTACAPONE\LEVODOPA
     Indication: PARKINSON^S DISEASE
     Route: 048
  9. MIRAPEX [Concomitant]
     Active Substance: PRAMIPEXOLE DIHYDROCHLORIDE
     Route: 065
  10. SELEGILINE [Concomitant]
     Active Substance: SELEGILINE
     Dosage: AS NEEDED
     Route: 065
     Dates: start: 2008
  11. LEVODOPA?CARBIDOPA [Concomitant]
     Active Substance: CARBIDOPA\LEVODOPA
     Route: 065
  12. ENTACAPONE. [Concomitant]
     Active Substance: ENTACAPONE
     Dosage: AS NEEDED
     Route: 065
     Dates: start: 2010

REACTIONS (7)
  - Dyskinesia [Recovering/Resolving]
  - Akinesia [Unknown]
  - Somnolence [Unknown]
  - Loss of personal independence in daily activities [Recovering/Resolving]
  - Motor dysfunction [Unknown]
  - Hypoaesthesia [Unknown]
  - Therapeutic response shortened [Unknown]
